FAERS Safety Report 6693928-3 (Version None)
Quarter: 2010Q2

REPORT INFORMATION
  Report Type: 
  Country: None (occurrence: None)
  Receive Date: 20100423
  Receipt Date: 20100412
  Transmission Date: 20101027
  Serious: Yes (Other)
  Sender: FDA-Public Use
  Company Number: US-PFIZER INC-2010046744

PATIENT
  Sex: Male
  Weight: 9.524 kg

DRUGS (1)
  1. AZITHROMYCIN [Suspect]
     Indication: OROPHARYNGEAL PAIN
     Dosage: UNK
     Route: 048
     Dates: start: 20091228, end: 20100103

REACTIONS (3)
  - COELIAC DISEASE [None]
  - IMMUNE SYSTEM DISORDER [None]
  - REGURGITATION [None]
